FAERS Safety Report 9857371 (Version 2)
Quarter: 2014Q1

REPORT INFORMATION
  Report Type: Spontaneous
  Country: US (occurrence: US)
  Receive Date: 20140131
  Receipt Date: 20140327
  Transmission Date: 20141002
  Serious: Yes (Other)
  Sender: FDA-Public Use
  Company Number: US-ROCHE-1341976

PATIENT
  Age: 71 Year
  Sex: Female

DRUGS (2)
  1. ALTEPLASE [Suspect]
     Indication: PULMONARY EMBOLISM
     Route: 042
  2. WARFARIN [Suspect]
     Indication: PULMONARY EMBOLISM
     Route: 065

REACTIONS (8)
  - Aortic intramural haematoma [Recovered/Resolved]
  - Vascular pseudoaneurysm [Recovered/Resolved]
  - Hypotension [Unknown]
  - Chest pain [Unknown]
  - Haematocrit decreased [Unknown]
  - Traumatic liver injury [Unknown]
  - Hepatic haematoma [Unknown]
  - Peritoneal haemorrhage [Unknown]
